FAERS Safety Report 24565473 (Version 1)
Quarter: 2024Q4

REPORT INFORMATION
  Report Type: Report from Study
  Country: HU (occurrence: HU)
  Receive Date: 20241030
  Receipt Date: 20241030
  Transmission Date: 20250115
  Serious: Yes (Other)
  Sender: RANBAXY
  Company Number: HU-SUN PHARMACEUTICAL INDUSTRIES LTD-2024R1-476125

PATIENT
  Age: 32 Year
  Sex: Female

DRUGS (8)
  1. METHYLPREDNISOLONE [Suspect]
     Active Substance: METHYLPREDNISOLONE
     Indication: Obliterative bronchiolitis
     Dosage: 0.5 MILLIGRAM/KILOGRAM
     Route: 048
  2. METHYLPREDNISOLONE [Suspect]
     Active Substance: METHYLPREDNISOLONE
     Indication: Castleman^s disease
  3. BUDESONIDE [Suspect]
     Active Substance: BUDESONIDE
     Indication: Obliterative bronchiolitis
     Dosage: UNK
     Route: 065
  4. BUDESONIDE [Suspect]
     Active Substance: BUDESONIDE
     Indication: Castleman^s disease
  5. TIOTROPIUM [Suspect]
     Active Substance: TIOTROPIUM
     Indication: Obliterative bronchiolitis
     Dosage: UNK
     Route: 065
  6. TIOTROPIUM [Suspect]
     Active Substance: TIOTROPIUM
     Indication: Castleman^s disease
  7. RITUXIMAB [Suspect]
     Active Substance: RITUXIMAB
     Indication: Castleman^s disease
     Dosage: 600 MILLIGRAM
     Route: 065
  8. RITUXIMAB [Suspect]
     Active Substance: RITUXIMAB
     Indication: Obliterative bronchiolitis

REACTIONS (1)
  - Acute respiratory failure [Recovering/Resolving]
